FAERS Safety Report 9797198 (Version 1)
Quarter: 2014Q1

REPORT INFORMATION
  Report Type: Spontaneous
  Country: IT (occurrence: IT)
  Receive Date: 20140106
  Receipt Date: 20140106
  Transmission Date: 20141002
  Serious: Yes (Hospitalization)
  Sender: FDA-Public Use
  Company Number: IT-MERCK-1312ITA012430

PATIENT
  Age: 65 Year
  Sex: Female
  Weight: 54 kg

DRUGS (3)
  1. REBETOL [Suspect]
     Indication: CHRONIC HEPATITIS C
     Dosage: 800 MG, QD
     Route: 048
     Dates: start: 20130411, end: 20131202
  2. PEGINTRON [Suspect]
     Indication: CHRONIC HEPATITIS C
     Dosage: 100 MICROGRAM, QW
     Route: 058
     Dates: start: 20130411, end: 20131202
  3. TAZOCIN [Concomitant]
     Indication: TOOTH AVULSION
     Dosage: 2G+0.250G/4 ML, 4G
     Route: 030
     Dates: start: 20131013, end: 20131023

REACTIONS (1)
  - Autoimmune haemolytic anaemia [Recovering/Resolving]
